FAERS Safety Report 10786554 (Version 2)
Quarter: 2015Q1

REPORT INFORMATION
  Report Type: Spontaneous
  Country: CH (occurrence: CH)
  Receive Date: 20150211
  Receipt Date: 20150217
  Transmission Date: 20150721
  Serious: Yes (Hospitalization)
  Sender: FDA-Public Use
  Company Number: CH-PFIZER INC-2015052669

PATIENT
  Age: 56 Year
  Sex: Male

DRUGS (19)
  1. SEROQUEL [Interacting]
     Active Substance: QUETIAPINE FUMARATE
     Indication: DELIRIUM
     Dosage: 25 MG, 1X/DAY
     Route: 040
     Dates: start: 20140621, end: 201406
  2. SEROQUEL [Interacting]
     Active Substance: QUETIAPINE FUMARATE
     Dosage: 50 MG, 1X/DAY
     Route: 040
     Dates: start: 201406, end: 201406
  3. HALDOL [Interacting]
     Active Substance: HALOPERIDOL
     Dosage: 7 MG, UNK
     Route: 040
     Dates: start: 20140629, end: 20140629
  4. PASPERTIN [Concomitant]
     Active Substance: METOCLOPRAMIDE HYDROCHLORIDE
     Dosage: UNK
  5. CORDARONE [Interacting]
     Active Substance: AMIODARONE HYDROCHLORIDE
     Dosage: 150 MG, DAILY
     Route: 041
     Dates: start: 20140626
  6. HALDOL [Interacting]
     Active Substance: HALOPERIDOL
     Dosage: 20--}16--}4 MG
     Route: 040
     Dates: start: 20140624, end: 20140626
  7. FLUIMUCIL [Concomitant]
     Active Substance: ACETYLCYSTEINE
     Dosage: UNK
  8. ACTRAPID [Concomitant]
     Active Substance: INSULIN HUMAN
     Dosage: UNK
  9. CORDARONE [Interacting]
     Active Substance: AMIODARONE HYDROCHLORIDE
     Indication: VENTRICULAR TACHYCARDIA
     Dosage: 2400 MG, DAILY
     Route: 041
     Dates: start: 20140617
  10. SEROQUEL [Interacting]
     Active Substance: QUETIAPINE FUMARATE
     Dosage: 75 MG, 1X/DAY
     Route: 040
     Dates: start: 201406, end: 20140626
  11. HALDOL [Interacting]
     Active Substance: HALOPERIDOL
     Indication: DELIRIUM
     Dosage: 8 MG, UNK
     Route: 040
     Dates: start: 20140617, end: 20140619
  12. LEVETIRACETAM. [Concomitant]
     Active Substance: LEVETIRACETAM
     Dosage: UNK
  13. CONCOR [Concomitant]
     Active Substance: BISOPROLOL FUMARATE
     Dosage: UNK
  14. ASPEGIC [Concomitant]
     Active Substance: ASPIRIN DL-LYSINE
     Dosage: UNK
  15. HEPARIN [Concomitant]
     Active Substance: HEPARIN SODIUM
     Dosage: UNK
  16. CORDARONE [Suspect]
     Active Substance: AMIODARONE HYDROCHLORIDE
     Indication: VENTRICULAR TACHYCARDIA
     Dosage: 200 MG, DAILY
     Route: 048
     Dates: start: 20140702
  17. ESOMEP [Concomitant]
     Active Substance: ESOMEPRAZOLE
  18. SEROQUEL [Interacting]
     Active Substance: QUETIAPINE FUMARATE
     Dosage: UNK, DAILY
     Route: 040
     Dates: start: 20140627, end: 20140703
  19. TIENAM [Concomitant]
     Active Substance: CILASTATIN SODIUM\IMIPENEM
     Dosage: UNK

REACTIONS (2)
  - Drug interaction [Unknown]
  - Neuroleptic malignant syndrome [Recovered/Resolved]

NARRATIVE: CASE EVENT DATE: 20140702
